FAERS Safety Report 4522073-8 (Version None)
Quarter: 2004Q4

REPORT INFORMATION
  Report Type: 
  Country: None (occurrence: None)
  Receive Date: 20041209
  Receipt Date: 20041112
  Transmission Date: 20050328
  Serious: Yes (Other)
  Sender: FDA-Public Use
  Company Number: CH-MERCK-0411CHE00029

PATIENT
  Age: 65 Year
  Sex: Female

DRUGS (2)
  1. VIOXX [Suspect]
     Indication: CERVICAL ROOT PAIN
     Route: 048
     Dates: start: 20020801, end: 20041004
  2. VIOXX [Suspect]
     Indication: HEADACHE
     Route: 048
     Dates: start: 20020801, end: 20041004

REACTIONS (3)
  - APHASIA [None]
  - CEREBRAL ISCHAEMIA [None]
  - CEREBROVASCULAR ACCIDENT [None]
